FAERS Safety Report 5240496-9 (Version None)
Quarter: 2007Q1

REPORT INFORMATION
  Report Type: 
  Country: None (occurrence: None)
  Receive Date: 20070219
  Receipt Date: 20070214
  Transmission Date: 20070707
  Serious: Yes (Hospitalization)
  Sender: FDA-Public Use
  Company Number: JP-JPN-A200700259

PATIENT
  Age: 84 Year
  Sex: Female

DRUGS (11)
  1. PAXIL [Suspect]
     Indication: DEPRESSION
     Dosage: 10MG PER DAY
     Route: 048
     Dates: start: 20060713, end: 20060815
  2. ENALAPRIL MALEATE [Concomitant]
     Indication: HYPERTENSION
     Dosage: 5MG PER DAY
     Route: 048
  3. NITRONAL [Concomitant]
     Indication: HYPERTENSION
     Dosage: 10MG PER DAY
     Route: 048
  4. DOXAZOSIN MESYLATE [Concomitant]
     Route: 048
  5. FUROSEMIDE [Concomitant]
     Indication: CARDIAC FAILURE
     Dosage: 20MG PER DAY
     Route: 065
  6. ALDACTONE [Concomitant]
     Indication: CARDIAC FAILURE
     Dosage: 25MG PER DAY
     Route: 048
  7. ETIZOLAM [Concomitant]
     Indication: DEPRESSION
     Dosage: .5MG PER DAY
     Route: 048
  8. FOSAMAX [Concomitant]
     Indication: OSTEOPOROSIS
     Dosage: 5MG PER DAY
     Route: 048
  9. MOBIC [Concomitant]
     Indication: BACK PAIN
     Dosage: 10MG PER DAY
     Route: 048
  10. SUCRALFATE [Concomitant]
     Indication: GASTRITIS
     Dosage: 3G PER DAY
     Route: 048
  11. CALONAL [Concomitant]
     Indication: HEADACHE
     Dosage: 400MG PER DAY
     Route: 048

REACTIONS (3)
  - DIZZINESS [None]
  - EXTRAPYRAMIDAL DISORDER [None]
  - MUSCLE RIGIDITY [None]
